FAERS Safety Report 6818348-X (Version None)
Quarter: 2010Q3

REPORT INFORMATION
  Report Type: 
  Country: None (occurrence: None)
  Receive Date: 20100706
  Receipt Date: 20080314
  Transmission Date: 20110219
  Serious: No
  Sender: FDA-Public Use
  Company Number: US-PFIZER INC-2008025117

PATIENT
  Sex: Female
  Weight: 20.41 kg

DRUGS (1)
  1. AZITHROMYCIN [Suspect]
     Indication: PNEUMONIA
     Dates: start: 20080311

REACTIONS (2)
  - ABDOMINAL PAIN UPPER [None]
  - MEDICATION ERROR [None]
